FAERS Safety Report 6584663-0 (Version None)
Quarter: 2010Q1

REPORT INFORMATION
  Report Type: 
  Country: None (occurrence: None)
  Receive Date: 20100204
  Receipt Date: 20100201
  Transmission Date: 20100710
  Serious: Yes (Other)
  Sender: FDA-Public Use
  Company Number: 493568

PATIENT
  Age: 42 Year
  Sex: Female
  Weight: 53.52 kg

DRUGS (3)
  1. FENTANYL CITRATE [Suspect]
     Indication: DRUG USE FOR UNKNOWN INDICATION
     Dosage: 100 MG
  2. FENTANYL [Suspect]
     Indication: DRUG USE FOR UNKNOWN INDICATION
     Dosage: ^50 MG PATCH^, OTHER
  3. (FAMVIR /01226201/) [Concomitant]

REACTIONS (1)
  - URTICARIA [None]
